FAERS Safety Report 9975347 (Version 1)
Quarter: 2014Q1

REPORT INFORMATION
  Report Type: Report from Study
  Country: US (occurrence: US)
  Receive Date: 20140306
  Receipt Date: 20140306
  Transmission Date: 20141002
  Serious: No
  Sender: FDA-Public Use
  Company Number: US-ABBVIE-13P-163-1155553-00

PATIENT
  Age: 24 Year
  Sex: Male

DRUGS (2)
  1. HUMIRA [Suspect]
     Indication: CROHN^S DISEASE
     Dates: start: 20131003, end: 20131003
  2. PREDNISONE TAPER [Concomitant]
     Indication: CROHN^S DISEASE
     Dosage: 7 TABLETS PER DAY FOR 1 WEEK

REACTIONS (1)
  - Injection site haemorrhage [Recovered/Resolved]
